FAERS Safety Report 7770025-7 (Version None)
Quarter: 2011Q3

REPORT INFORMATION
  Report Type: 
  Country: None (occurrence: None)
  Receive Date: 20110922
  Receipt Date: 20100517
  Transmission Date: 20111222
  Serious: No
  Sender: FDA-Public Use
  Company Number: US-ASTRAZENECA-2010SE49328

PATIENT
  Age: 23478 Day
  Sex: Male
  Weight: 60.1 kg

DRUGS (7)
  1. ACCUPRIL [Concomitant]
     Route: 048
     Dates: start: 20040203
  2. PEPCID [Concomitant]
     Route: 048
     Dates: start: 20040203
  3. MICRONASE [Concomitant]
     Route: 048
     Dates: start: 20040203
  4. SEROQUEL [Suspect]
     Indication: AGITATION
     Dosage: 25 MG TO 75 MG
     Route: 048
     Dates: start: 20040124
  5. AZULFIDINE [Concomitant]
     Dosage: 500 TO 2000 MG
     Route: 048
     Dates: start: 20040203
  6. BENADRYL [Concomitant]
     Route: 048
     Dates: start: 20040124
  7. ATIVAN [Concomitant]
     Route: 048
     Dates: start: 20040203

REACTIONS (4)
  - CHEST PAIN [None]
  - TYPE 2 DIABETES MELLITUS [None]
  - ESSENTIAL HYPERTENSION [None]
  - PRESENILE DEMENTIA [None]
